FAERS Safety Report 5095884-0 (Version None)
Quarter: 2006Q3

REPORT INFORMATION
  Report Type: 
  Country: None (occurrence: None)
  Receive Date: 20060727
  Receipt Date: 20060525
  Transmission Date: 20061208
  Serious: No
  Sender: FDA-Public Use
  Company Number: FACT0600262

PATIENT
  Age: 42 Year
  Sex: Female

DRUGS (1)
  1. FACTIVE [Suspect]
     Indication: RESPIRATORY TRACT INFECTION BACTERIAL
     Dosage: QD, ORAL
     Route: 048
     Dates: start: 20060517, end: 20060521

REACTIONS (2)
  - RASH GENERALISED [None]
  - WHITE BLOOD CELL COUNT INCREASED [None]
